FAERS Safety Report 26208798 (Version 1)
Quarter: 2025Q4

REPORT INFORMATION
  Report Type: Spontaneous
  Country: EU (occurrence: EU)
  Receive Date: 20251229
  Receipt Date: 20251229
  Transmission Date: 20260117
  Serious: Yes (Hospitalization)
  Sender: AMGEN
  Company Number: EU-GLAXOSMITHKLINE-FI2020GSK101097

PATIENT
  Age: 64 Year
  Sex: Female
  Weight: 66.5 kg

DRUGS (11)
  1. BEVACIZUMAB [Suspect]
     Active Substance: BEVACIZUMAB
     Indication: Ovarian cancer
     Dosage: 7.5 MG/KG
     Route: 040
     Dates: start: 20200114
  2. NIRAPARIB [Suspect]
     Active Substance: NIRAPARIB
     Indication: Ovarian cancer
     Dosage: UNK
     Route: 048
     Dates: start: 20200519
  3. DOSTARLIMAB [Suspect]
     Active Substance: DOSTARLIMAB
     Indication: Ovarian cancer
     Dosage: 500 MG
     Route: 040
     Dates: start: 20200114
  4. DOSTARLIMAB [Suspect]
     Active Substance: DOSTARLIMAB
     Dosage: 1000 MG
     Route: 040
     Dates: start: 20200428
  5. CARBOPLATIN [Suspect]
     Active Substance: CARBOPLATIN
     Indication: Ovarian cancer
     Dosage: 5 AUC
     Route: 040
     Dates: start: 20191223
  6. PACLITAXEL [Suspect]
     Active Substance: PACLITAXEL
     Indication: Ovarian cancer
     Dosage: 290 MG
     Route: 040
     Dates: start: 20191223
  7. PACLITAXEL [Suspect]
     Active Substance: PACLITAXEL
     Dosage: 285 MG
     Route: 040
     Dates: start: 20200225
  8. PACLITAXEL [Suspect]
     Active Substance: PACLITAXEL
     Dosage: 280 MG
     Route: 040
     Dates: start: 20200317
  9. TARGINIQ ER [Concomitant]
     Active Substance: NALOXONE HYDROCHLORIDE\OXYCODONE HYDROCHLORIDE
     Indication: Back pain
     Dosage: 5/2.5 MG, BID
     Route: 048
     Dates: start: 20200717
  10. OXYCODONE HYDROCHLORIDE [Concomitant]
     Active Substance: OXYCODONE HYDROCHLORIDE
     Indication: Back pain
     Dosage: 5 MG, PRN
     Route: 048
     Dates: start: 20200717
  11. ETORICOXIB [Concomitant]
     Active Substance: ETORICOXIB
     Indication: Back pain
     Dosage: 90 MG, QD
     Route: 048
     Dates: start: 20200717

REACTIONS (3)
  - Blood alkaline phosphatase increased [Recovered/Resolved]
  - Gastroenteritis [Recovered/Resolved]
  - Adrenal insufficiency [Recovered/Resolved with Sequelae]

NARRATIVE: CASE EVENT DATE: 20200615
